FAERS Safety Report 9842082 (Version 1)
Quarter: 2013Q4

REPORT INFORMATION
  Report Type: Spontaneous
  Country: US (occurrence: None)
  Receive Date: 20131219
  Receipt Date: 20131219
  Transmission Date: 20140711
  Serious: Yes (Other)
  Sender: FDA-Public Use
  Company Number: 163-20785-13060717

PATIENT
  Age: 83 Year
  Sex: Female
  Weight: 58.97 kg

DRUGS (3)
  1. THALOMID (THALIDOMIDE) (50 MILLIGRAM, CAPSULES) [Suspect]
     Indication: MALIGNANT MELANOMA
     Dosage: 1 IN 1 D
     Route: 048
     Dates: start: 20130206
  2. TEMODAR [Suspect]
     Dosage: 6 IN 6 WK
     Route: 048
     Dates: start: 20130211
  3. PLATELET [Concomitant]

REACTIONS (1)
  - Pancytopenia [None]
